FAERS Safety Report 7905911-8 (Version None)
Quarter: 2011Q4

REPORT INFORMATION
  Report Type: 
  Country: None (occurrence: None)
  Receive Date: 20111108
  Receipt Date: 20111020
  Transmission Date: 20120403
  Serious: Yes (Congenital Anomaly)
  Sender: FDA-Public Use
  Company Number: ADR-UNK-041

PATIENT
  Age: 252 Day
  Sex: Male
  Weight: 425.2 kg

DRUGS (6)
  1. DARUNAVIR - 800 MG/DAY (04/28/2011) [Concomitant]
  2. RITONAVIR -200 MG/DAY (04/28/2011-05/18/2011; [Concomitant]
  3. ZIDOVUDINE [Suspect]
     Indication: ACQUIRED IMMUNODEFICIENCY SYNDROME
     Dosage: BID
     Dates: start: 20110915, end: 20110915
  4. LAMIVUDINE AND ZIDOVUDINE - 1 COURSE (04/21/2011-09/15/2011) [Concomitant]
  5. LOPINAVIR AND RITONAVIR - 1 COURSE (04/21/2011-04/28/2011) [Concomitant]
  6. RITONAVIR - 100 MG/DAY (05/19/2011); [Concomitant]

REACTIONS (3)
  - PREMATURE BABY [None]
  - FOETAL GROWTH RESTRICTION [None]
  - MATERNAL DRUGS AFFECTING FOETUS [None]
